FAERS Safety Report 8103549-3 (Version None)
Quarter: 2012Q1

REPORT INFORMATION
  Report Type: 
  Country: None (occurrence: None)
  Receive Date: 20120201
  Receipt Date: 20120126
  Transmission Date: 20120608
  Serious: Yes (Life-Threatening)
  Sender: FDA-Public Use
  Company Number: JP-PFIZER INC-2011314429

PATIENT
  Age: 52 Year
  Sex: Male

DRUGS (5)
  1. TEMSIROLIMUS [Suspect]
     Indication: RENAL CELL CARCINOMA
     Dosage: 25 MG, WEEKLY
     Route: 042
     Dates: start: 20110815, end: 20110926
  2. OXYCONTIN [Concomitant]
     Indication: CANCER PAIN
     Dosage: 10 MG, 2X/DAY
     Route: 048
  3. LANSOPRAZOLE [Concomitant]
     Dosage: 15 MG, 1X/DAY
     Route: 048
  4. NAPROXEN [Concomitant]
     Indication: CANCER PAIN
     Dosage: 200 MG, 3X/DAY
     Route: 048
  5. POLARAMINE [Concomitant]
     Indication: PROPHYLAXIS
     Dosage: 5 MG, WEEKLY
     Route: 042
     Dates: start: 20110815, end: 20110926

REACTIONS (2)
  - INTERSTITIAL LUNG DISEASE [None]
  - PNEUMOCYSTIS JIROVECI PNEUMONIA [None]
